FAERS Safety Report 9139792 (Version 1)
Quarter: 2013Q1

REPORT INFORMATION
  Report Type: Spontaneous
  Country: US (occurrence: US)
  Receive Date: 20130305
  Receipt Date: 20130305
  Transmission Date: 20140127
  Serious: Yes (Death, Hospitalization, Other)
  Sender: FDA-Public Use
  Company Number: US-009507513-1111USA00440

PATIENT
  Sex: Female

DRUGS (2)
  1. FOSAMAX [Suspect]
     Indication: OSTEOPOROSIS
     Route: 048
  2. FOSAMAX [Suspect]
     Indication: RHEUMATOID ARTHRITIS

REACTIONS (18)
  - Death [Fatal]
  - Femur fracture [Unknown]
  - Fall [Unknown]
  - Intramedullary rod insertion [Unknown]
  - Fall [Unknown]
  - Femur fracture [Unknown]
  - Surgery [Unknown]
  - Coma [Recovered/Resolved]
  - Pulmonary embolism [Unknown]
  - Coma [Recovered/Resolved]
  - Coma [Not Recovered/Not Resolved]
  - Depression [Unknown]
  - Anxiety [Unknown]
  - Vasculitis [Unknown]
  - Fibromyalgia [Unknown]
  - Off label use [Unknown]
  - Diabetes mellitus [Unknown]
  - Hypertension [Unknown]
